FAERS Safety Report 4879155-0 (Version None)
Quarter: 2006Q1

REPORT INFORMATION
  Report Type: 
  Country: None (occurrence: None)
  Receive Date: 20060112
  Receipt Date: 20060103
  Transmission Date: 20060701
  Serious: Yes (Disabling)
  Sender: FDA-Public Use
  Company Number: US-ROCHE-430563

PATIENT
  Age: 19 Year
  Sex: Male

DRUGS (3)
  1. NAPROSYN [Suspect]
     Indication: ARTHRITIS
     Dosage: TAKEN FOR ONE OR TWO DAYS.
     Route: 065
     Dates: start: 20050615, end: 20050615
  2. ALEVE [Suspect]
     Route: 065
     Dates: start: 20050615
  3. ALEVE [Suspect]
     Route: 065
     Dates: start: 20050615, end: 20051215

REACTIONS (1)
  - ARTHRALGIA [None]
